FAERS Safety Report 4531468-8 (Version None)
Quarter: 2004Q4

REPORT INFORMATION
  Report Type: 
  Country: None (occurrence: None)
  Receive Date: 20041216
  Receipt Date: 20041201
  Transmission Date: 20050328
  Serious: Yes (Hospitalization)
  Sender: FDA-Public Use
  Company Number: 2004BI000794

PATIENT
  Age: 48 Year
  Sex: Male
  Weight: 97.5234 kg

DRUGS (3)
  1. AVONEX [Suspect]
     Indication: MULTIPLE SCLEROSIS
     Dosage: 30 UG; QW; IM
     Route: 030
     Dates: start: 19960101, end: 20030101
  2. AVONEX [Suspect]
     Indication: MULTIPLE SCLEROSIS
     Dosage: 30 UG; QW; IM
     Route: 030
     Dates: start: 20030101
  3. PAIN MEDICATION NOS [Concomitant]

REACTIONS (9)
  - BONE DISORDER [None]
  - BONE PAIN [None]
  - CARTILAGE INJURY [None]
  - GAIT DISTURBANCE [None]
  - JOINT INJURY [None]
  - LIGAMENT INJURY [None]
  - SCAR [None]
  - SWELLING [None]
  - X-RAY ABNORMAL [None]
